FAERS Safety Report 4519395-3 (Version None)
Quarter: 2004Q4

REPORT INFORMATION
  Report Type: 
  Country: None (occurrence: None)
  Receive Date: 20041206
  Receipt Date: 20041201
  Transmission Date: 20050328
  Serious: Yes (Death)
  Sender: FDA-Public Use
  Company Number: 04-11-1663

PATIENT
  Age: 59 Year
  Sex: Female

DRUGS (1)
  1. CLOZAPINE [Suspect]
     Indication: SCHIZOPHRENIA
     Dosage: 50-400MG QD ORAL
     Route: 048
     Dates: start: 20030601, end: 20041001

REACTIONS (2)
  - COLORECTAL CANCER [None]
  - METASTASES TO LIVER [None]
